FAERS Safety Report 25630983 (Version 3)
Quarter: 2025Q3

REPORT INFORMATION
  Report Type: Report from Study
  Country: US (occurrence: US)
  Receive Date: 20250801
  Receipt Date: 20250917
  Transmission Date: 20251020
  Serious: Yes (Death, Life-Threatening, Other)
  Sender: MEDEXUS PHARMA
  Company Number: US-MEDEXUS PHARMA, INC.-2025MED00227

PATIENT
  Age: 2 Year
  Sex: Female
  Weight: 12.8 kg

DRUGS (22)
  1. TREOSULFAN [Suspect]
     Active Substance: TREOSULFAN
     Indication: Bone marrow conditioning regimen
     Dosage: 12 G, 1X/DAY
     Route: 042
     Dates: start: 20250522, end: 20250524
  2. TREOSULFAN [Suspect]
     Active Substance: TREOSULFAN
     Indication: Allogenic stem cell transplantation
  3. TREOSULFAN [Suspect]
     Active Substance: TREOSULFAN
     Indication: Immunodeficiency congenital
  4. ALEMTUZUMAB [Concomitant]
     Active Substance: ALEMTUZUMAB
     Dates: start: 20250520, end: 20250522
  5. FLUDARABINE [Concomitant]
     Active Substance: FLUDARABINE PHOSPHATE
     Dates: start: 20250522, end: 20250526
  6. THIOTEPA [Concomitant]
     Active Substance: THIOTEPA
     Dates: start: 20250526, end: 20250526
  7. TACROLIMUS [Concomitant]
     Active Substance: TACROLIMUS
     Dates: start: 20250526
  8. ABATACEPT [Concomitant]
     Active Substance: ABATACEPT
     Dates: start: 20250527, end: 20250625
  9. MYCOPHENOLATE MOFETIL [Concomitant]
     Active Substance: MYCOPHENOLATE MOFETIL
     Dates: start: 20250529, end: 20250627
  10. METHYLPREDNISOLONE [Concomitant]
     Active Substance: METHYLPREDNISOLONE
     Dates: start: 20250621
  11. METHYLPREDNISOLONE [Concomitant]
     Active Substance: METHYLPREDNISOLONE
     Dates: start: 20250712
  12. ECULIZUMAB [Concomitant]
     Active Substance: ECULIZUMAB
     Dates: start: 20250706
  13. LETERMOVIR [Concomitant]
     Active Substance: LETERMOVIR
     Dates: start: 20250528, end: 20250602
  14. FOSCARNET [Concomitant]
     Active Substance: FOSCARNET
     Dates: start: 20250602, end: 20250620
  15. GANCICLOVIR [Concomitant]
     Active Substance: GANCICLOVIR
     Dates: start: 20250620
  16. MICAFUNGIN [Concomitant]
     Active Substance: MICAFUNGIN SODIUM
     Dates: start: 20250520, end: 20250729
  17. ISAVUCONAZOLE [Concomitant]
     Active Substance: ISAVUCONAZOLE
     Dates: start: 20250729
  18. ETANERCEPT [Concomitant]
     Active Substance: ETANERCEPT
     Dates: start: 20250715
  19. RUXOLITINIB [Concomitant]
     Active Substance: RUXOLITINIB
     Dates: start: 20250718
  20. AZITHROMYCIN [Concomitant]
     Active Substance: AZITHROMYCIN
     Dates: start: 20250721
  21. PENICILLIN V POTASSIUM [Concomitant]
     Active Substance: PENICILLIN V POTASSIUM
     Dates: start: 20250712
  22. PENTAMIDINE [Concomitant]
     Active Substance: PENTAMIDINE
     Dates: start: 20250709

REACTIONS (14)
  - Acute respiratory failure [Fatal]
  - Cardio-respiratory arrest [Recovered/Resolved]
  - Idiopathic pneumonia syndrome [Fatal]
  - Interstitial lung disease [Fatal]
  - Pneumonitis [Fatal]
  - Renal tubular necrosis [Not Recovered/Not Resolved]
  - Venoocclusive liver disease [Recovered/Resolved]
  - Multiple organ dysfunction syndrome [Not Recovered/Not Resolved]
  - Cytomegalovirus infection reactivation [Recovered/Resolved]
  - Thrombotic microangiopathy [Recovering/Resolving]
  - Escherichia test positive [Unknown]
  - Klebsiella test positive [Unknown]
  - Mucosal inflammation [Unknown]
  - Pyrexia [Unknown]

NARRATIVE: CASE EVENT DATE: 20250101
